FAERS Safety Report 17912310 (Version 1)
Quarter: 2020Q2

REPORT INFORMATION
  Report Type: Spontaneous
  Country: US (occurrence: US)
  Receive Date: 20200618
  Receipt Date: 20200618
  Transmission Date: 20200714
  Serious: No
  Sender: FDA-Public Use
  Company Number: US-SA-2020SA156177

PATIENT

DRUGS (2)
  1. DUPIXENT [Suspect]
     Active Substance: DUPILUMAB
     Indication: NASAL POLYPS
  2. FLUTICASONE PROPIONATE. [Concomitant]
     Active Substance: FLUTICASONE PROPIONATE
     Indication: NASAL POLYPS

REACTIONS (7)
  - Dyspnoea [Unknown]
  - Sleep disorder [Unknown]
  - Anosmia [Unknown]
  - Upper-airway cough syndrome [Unknown]
  - Asthma [Unknown]
  - Nasal congestion [Unknown]
  - Rhinorrhoea [Unknown]
